FAERS Safety Report 7597745-1 (Version None)
Quarter: 2011Q3

REPORT INFORMATION
  Report Type: 
  Country: None (occurrence: None)
  Receive Date: 20110708
  Receipt Date: 20110628
  Transmission Date: 20111222
  Serious: Yes (Other)
  Sender: FDA-Public Use
  Company Number: FR-GLAXOSMITHKLINE-B0729064A

PATIENT
  Sex: Female

DRUGS (7)
  1. EPIRUBICIN [Concomitant]
     Indication: CHEMOTHERAPY
     Route: 065
     Dates: start: 20110428, end: 20110428
  2. VERPAMIL HCL [Concomitant]
     Route: 065
  3. FLUOROURACIL [Concomitant]
     Indication: CHEMOTHERAPY
     Route: 065
     Dates: start: 20110428, end: 20110428
  4. CYCLOPHOSPHAMIDE [Concomitant]
     Indication: CHEMOTHERAPY
     Route: 065
     Dates: start: 20110428, end: 20110428
  5. DIAMICRON [Concomitant]
     Route: 065
  6. CANDESARTAN CILEXETIL [Concomitant]
     Route: 065
  7. ONDANSERTRON HYDROCHLORIDE [Suspect]
     Indication: PROPHYLAXIS OF NAUSEA AND VOMITING
     Dosage: 8MG SEE DOSAGE TEXT
     Route: 048
     Dates: start: 20110427, end: 20110428

REACTIONS (2)
  - FACE OEDEMA [None]
  - ERYTHEMA [None]
